FAERS Safety Report 11622345 (Version 1)
Quarter: 2015Q4

REPORT INFORMATION
  Report Type: Spontaneous
  Country: US (occurrence: US)
  Receive Date: 20151013
  Receipt Date: 20151013
  Transmission Date: 20160304
  Serious: No
  Sender: FDA-Public Use
  Company Number: US-JNJFOC-20150412513

PATIENT
  Age: 4 Month
  Sex: Female

DRUGS (2)
  1. INFANTS TYLENOL [Suspect]
     Active Substance: ACETAMINOPHEN
     Indication: TEETHING
     Dosage: WAS NOT GIVEN THE DRUG EVERYDAY (AS NECESSARY)
     Route: 048
  2. INFANTS TYLENOL [Suspect]
     Active Substance: ACETAMINOPHEN
     Route: 048

REACTIONS (4)
  - Product use issue [Unknown]
  - Bronchial disorder [Unknown]
  - Nasopharyngitis [Unknown]
  - Pyrexia [Unknown]
